FAERS Safety Report 7329365-8 (Version None)
Quarter: 2011Q1

REPORT INFORMATION
  Report Type: 
  Country: None (occurrence: None)
  Receive Date: 20110303
  Receipt Date: 20110225
  Transmission Date: 20110831
  Serious: Yes (Hospitalization)
  Sender: FDA-Public Use
  Company Number: CHPA2011IT03308

PATIENT
  Sex: Male

DRUGS (2)
  1. ACETAMINOPHEN, ASPIRIN AND CAFFEINE [Suspect]
     Indication: INFLUENZA
     Dosage: 1 DF, QD
     Route: 048
     Dates: start: 20110215, end: 20110219
  2. FLUIMUCIL [Suspect]
     Indication: INFLUENZA
     Dosage: 600 MG, QD
     Route: 048
     Dates: start: 20110215, end: 20110219

REACTIONS (2)
  - OEDEMA [None]
  - ERYTHEMA [None]
